FAERS Safety Report 5789434-0 (Version None)
Quarter: 2008Q2

REPORT INFORMATION
  Report Type: 
  Country: None (occurrence: None)
  Receive Date: 20080626
  Receipt Date: 20080122
  Transmission Date: 20081010
  Serious: No
  Sender: FDA-Public Use
  Company Number: US-ASTRAZENECA-2008UW01574

PATIENT
  Age: 75 Year
  Sex: Female
  Weight: 54 kg

DRUGS (3)
  1. PULMICORT RESPULES [Suspect]
     Indication: ASTHMA
     Route: 055
     Dates: start: 20071201
  2. XOPENEX [Concomitant]
  3. IPRATROPIUM BROMIDE [Concomitant]

REACTIONS (3)
  - BLOOD URINE PRESENT [None]
  - POOR QUALITY SLEEP [None]
  - URINARY TRACT INFECTION [None]
